FAERS Safety Report 8901435 (Version 4)
Quarter: 2013Q1

REPORT INFORMATION
  Report Type: Report from Study
  Country: US (occurrence: US)
  Receive Date: 20121109
  Receipt Date: 20130130
  Transmission Date: 20140127
  Serious: Yes (Hospitalization, Other)
  Sender: FDA-Public Use
  Company Number: US-JNJFOC-20121017612

PATIENT
  Age: 56 None
  Sex: Male
  Weight: 98.88 kg

DRUGS (17)
  1. REMICADE [Suspect]
     Indication: POLYARTHRITIS
     Route: 042
     Dates: end: 201209
  2. REMICADE [Suspect]
     Indication: POLYARTHRITIS
     Dosage: 10 UNITS PER KILOGRAM
     Route: 042
     Dates: start: 20110501
  3. REMICADE [Suspect]
     Indication: POLYARTHRITIS
     Dosage: 25-SEPT-2013
     Route: 042
     Dates: start: 20120925
  4. REMICADE [Suspect]
     Indication: COLITIS ULCERATIVE
     Route: 042
     Dates: end: 201209
  5. REMICADE [Suspect]
     Indication: COLITIS ULCERATIVE
     Dosage: 10 UNITS PER KILOGRAM
     Route: 042
     Dates: start: 20110501
  6. REMICADE [Suspect]
     Indication: COLITIS ULCERATIVE
     Dosage: 25-SEPT-2013
     Route: 042
     Dates: start: 20120925
  7. FOLIC ACID [Concomitant]
     Route: 065
  8. LAXATIVE [Concomitant]
     Route: 065
  9. PRILOSEC [Concomitant]
     Route: 065
  10. LEVOFLOXACIN [Concomitant]
     Route: 065
  11. OXYCODONE [Concomitant]
     Route: 065
  12. DIPHENHYDRAMINE [Concomitant]
     Route: 065
  13. OMEPRAZOLE [Concomitant]
     Route: 065
  14. VITAMIN D3 [Concomitant]
     Route: 065
  15. RECLAST [Concomitant]
     Route: 042
  16. ATROPINE-DIPHENOXYLATE [Concomitant]
     Dosage: 0.025 MG TO 2.5 MG
     Route: 065
  17. METHOTREXATE [Concomitant]
     Dosage: 3 TABS
     Route: 048

REACTIONS (16)
  - Pleural effusion [Recovering/Resolving]
  - Pericardial effusion [Recovering/Resolving]
  - Atelectasis [Recovering/Resolving]
  - Bronchitis [Recovering/Resolving]
  - Hypertension [Recovering/Resolving]
  - White blood cell count increased [Recovering/Resolving]
  - Anaemia [Recovering/Resolving]
  - C-reactive protein increased [Recovering/Resolving]
  - Osteopenia [Recovering/Resolving]
  - Pneumonia [Recovering/Resolving]
  - Antinuclear antibody positive [Unknown]
  - Liver function test abnormal [Recovering/Resolving]
  - Rash [Recovering/Resolving]
  - Infusion related reaction [Recovering/Resolving]
  - Hot flush [Recovering/Resolving]
  - Immunosuppressant drug level decreased [Unknown]
